FAERS Safety Report 4758281-0 (Version None)
Quarter: 2005Q3

REPORT INFORMATION
  Report Type: 
  Country: None (occurrence: None)
  Receive Date: 20050826
  Receipt Date: 20050610
  Transmission Date: 20060218
  Serious: No
  Sender: FDA-Public Use
  Company Number: WAES 0506USA01828

PATIENT
  Age: 74 Year
  Sex: Female

DRUGS (3)
  1. ZETIA [Suspect]
     Indication: BLOOD CHOLESTEROL INCREASED
     Dosage: 10 MG/DAILY/PO
     Route: 048
     Dates: start: 20050101, end: 20050401
  2. CALAN [Concomitant]
  3. TICLID [Concomitant]

REACTIONS (2)
  - FLANK PAIN [None]
  - MUSCLE SPASMS [None]
